FAERS Safety Report 24040266 (Version 1)
Quarter: 2024Q3

REPORT INFORMATION
  Report Type: Spontaneous
  Country: US (occurrence: None)
  Receive Date: 20240701
  Receipt Date: 20240701
  Transmission Date: 20241016
  Serious: Yes (Other)
  Sender: Public
  Company Number: None

PATIENT
  Age: 55 Year
  Sex: Female
  Weight: 90 kg

DRUGS (5)
  1. CEQUA [Suspect]
     Active Substance: CYCLOSPORINE
     Indication: Dry eye
     Dosage: 1 DROP TWICE A DAY OPHTHALMIC ?FREQUENCY : TWICE A DAY;?
     Route: 047
     Dates: start: 20240531, end: 20240601
  2. EFFEXOR XR [Concomitant]
     Active Substance: VENLAFAXINE HYDROCHLORIDE
  3. ZINC [Concomitant]
     Active Substance: ZINC
  4. VITAMIN D [Concomitant]
     Active Substance: VITAMIN D NOS
  5. METHYLCOBALAMIN [Concomitant]
     Active Substance: METHYLCOBALAMIN

REACTIONS (3)
  - Ocular hyperaemia [None]
  - Eye pruritus [None]
  - Eye swelling [None]

NARRATIVE: CASE EVENT DATE: 20240605
